FAERS Safety Report 7569696-X (Version None)
Quarter: 2011Q2

REPORT INFORMATION
  Report Type: 
  Country: None (occurrence: None)
  Receive Date: 20110624
  Receipt Date: 20110623
  Transmission Date: 20111010
  Serious: No
  Sender: FDA-Public Use
  Company Number: US-PFIZER INC-2011139711

PATIENT
  Sex: Female
  Weight: 65.8 kg

DRUGS (2)
  1. CELEBREX [Suspect]
     Indication: PAIN
     Dosage: 200 MG, 1X/DAY
     Route: 048
     Dates: start: 20110621
  2. OXYBUTYNIN [Concomitant]
     Dosage: UNK, 2X/DAY

REACTIONS (1)
  - PAIN [None]
